FAERS Safety Report 9359327 (Version 1)
Quarter: 2013Q2

REPORT INFORMATION
  Report Type: Spontaneous
  Country: FR (occurrence: FR)
  Receive Date: 20130620
  Receipt Date: 20130620
  Transmission Date: 20140414
  Serious: Yes (Other)
  Sender: FDA-Public Use
  Company Number: PHHY2013FR061383

PATIENT
  Age: 28 Year
  Sex: Female

DRUGS (21)
  1. NEORAL [Suspect]
     Indication: BONE MARROW TRANSPLANT
     Dosage: 230 MG, BID
     Route: 048
     Dates: start: 20120925, end: 20121005
  2. METHOTREXATE [Suspect]
     Indication: BONE MARROW TRANSPLANT
     Dates: start: 20120927
  3. METHOTREXATE [Suspect]
     Dates: start: 20120928
  4. METHOTREXATE [Suspect]
     Dates: start: 20120930
  5. METHOTREXATE [Suspect]
     Dates: start: 20121003
  6. VANCOMYCINE MYLAN [Suspect]
     Indication: ANTIBIOTIC PROPHYLAXIS
     Dosage: 0.89 MG, QD
     Route: 042
     Dates: start: 20121001, end: 20121004
  7. PIPERACILLIN TAZOBACTAM PANPHARMA [Suspect]
     Indication: ANTIBIOTIC PROPHYLAXIS
     Route: 042
     Dates: start: 20120924, end: 20121029
  8. FLUCONAZOLE KABI [Suspect]
     Indication: ANTIBIOTIC PROPHYLAXIS
     Dosage: 400 MG, QD
     Route: 042
     Dates: start: 20120923, end: 20121006
  9. ACICLOVIR MYLAN [Suspect]
     Dosage: 750 MG, QD
     Route: 042
     Dates: start: 20120921, end: 20121106
  10. ACUPAN [Suspect]
     Dosage: 60 MG, QD
     Route: 042
     Dates: start: 20120928, end: 20121017
  11. MIDAZOLAM MYLAN [Suspect]
     Dosage: 10 MG, QD
     Route: 042
     Dates: start: 20120917, end: 20121007
  12. ZELITREX [Concomitant]
  13. BACTRIM [Concomitant]
  14. OMEPRAZOLE [Concomitant]
  15. CETIRIZINE [Concomitant]
  16. SEGLOR [Concomitant]
  17. HOLGYEME [Concomitant]
  18. RADIATION THERAPY [Concomitant]
     Indication: BONE MARROW DISORDER
     Dates: start: 20120917, end: 20120919
  19. ENDOXAN [Concomitant]
     Indication: BONE MARROW DISORDER
     Dates: start: 201209
  20. AMIKLIN [Concomitant]
     Indication: ANTIBIOTIC PROPHYLAXIS
     Dosage: 1 G, UNK
     Dates: start: 20120924
  21. ANTILYMPHOCYTE SERUM [Concomitant]
     Indication: GRAFT VERSUS HOST DISEASE

REACTIONS (2)
  - Thrombotic microangiopathy [Recovering/Resolving]
  - Renal failure [Recovering/Resolving]
